FAERS Safety Report 6004777-3 (Version None)
Quarter: 2008Q4

REPORT INFORMATION
  Report Type: 
  Country: None (occurrence: None)
  Receive Date: 20081216
  Receipt Date: 20081204
  Transmission Date: 20090506
  Serious: Yes (Hospitalization, Other)
  Sender: FDA-Public Use
  Company Number: US-ELI_LILLY_AND_COMPANY-US200812001615

PATIENT
  Age: 51 Year
  Sex: Female

DRUGS (8)
  1. CYMBALTA [Suspect]
     Indication: DIABETIC NEUROPATHY
     Dosage: 1 D/F, UNK
     Dates: start: 20081105
  2. CYMBALTA [Suspect]
     Dosage: 60 MG, UNK
     Dates: end: 20081204
  3. METFORMIN HCL [Concomitant]
     Dates: start: 20081203
  4. AMARYL [Concomitant]
     Dates: end: 20081203
  5. LISINOPRIL [Concomitant]
  6. HYDROCHLOROTHIAZIDE [Concomitant]
  7. CLONIDINE [Concomitant]
  8. TOPROL-XL [Concomitant]

REACTIONS (3)
  - BLOOD CREATININE INCREASED [None]
  - HOSPITALISATION [None]
  - VOMITING [None]
